FAERS Safety Report 18907762 (Version 1)
Quarter: 2021Q1

REPORT INFORMATION
  Report Type: Spontaneous
  Country: JP (occurrence: JP)
  Receive Date: 20210218
  Receipt Date: 20210218
  Transmission Date: 20210420
  Serious: Yes (Other)
  Sender: FDA-Public Use
  Company Number: JP-ROCHE-2771972

PATIENT
  Age: 40 Year
  Sex: Female

DRUGS (2)
  1. RITUXAN [Suspect]
     Active Substance: RITUXIMAB
     Indication: PRODUCT USED FOR UNKNOWN INDICATION
     Route: 041
     Dates: start: 20210119
  2. ACTEMRA [Concomitant]
     Active Substance: TOCILIZUMAB
     Route: 042

REACTIONS (1)
  - Castleman^s disease [Unknown]

NARRATIVE: CASE EVENT DATE: 20210119
